FAERS Safety Report 15239029 (Version 5)
Quarter: 2018Q3

REPORT INFORMATION
  Report Type: Report from Study
  Country: US (occurrence: US)
  Receive Date: 20180803
  Receipt Date: 20180921
  Transmission Date: 20181010
  Serious: Yes (Other)
  Sender: FDA-Public Use
  Company Number: US-ROCHE-2163071

PATIENT
  Sex: Female
  Weight: 49.94 kg

DRUGS (7)
  1. BETADINE [Concomitant]
     Active Substance: POVIDONE-IODINE
  2. AVASTIN [Suspect]
     Active Substance: BEVACIZUMAB
     Indication: MACULAR DEGENERATION
     Dosage: ONCE EVERY 6 WEEKS IN BOTH EYES ;ONGOING: YES
     Route: 031
     Dates: start: 2016
  3. LUCENTIS [Suspect]
     Active Substance: RANIBIZUMAB
     Indication: NEOVASCULAR AGE-RELATED MACULAR DEGENERATION
     Route: 065
  4. SIMVASTATIN. [Concomitant]
     Active Substance: SIMVASTATIN
     Indication: BLOOD CHOLESTEROL
     Route: 065
  5. AVASTIN [Suspect]
     Active Substance: BEVACIZUMAB
     Route: 050
     Dates: start: 20180613
  6. LUCENTIS [Suspect]
     Active Substance: RANIBIZUMAB
     Indication: CHOROIDAL NEOVASCULARISATION
  7. LEVOTHYROXINE. [Concomitant]
     Active Substance: LEVOTHYROXINE
     Route: 065

REACTIONS (11)
  - Off label use [Unknown]
  - Pain [Recovered/Resolved]
  - Intentional product use issue [Unknown]
  - Eye pain [Unknown]
  - Lacrimation increased [Recovered/Resolved]
  - Pain [Recovering/Resolving]
  - Eye swelling [Unknown]
  - Bladder cancer [Recovered/Resolved]
  - Burning sensation [Recovered/Resolved]
  - Eyelid oedema [Recovered/Resolved]
  - Rhinorrhoea [Recovered/Resolved]

NARRATIVE: CASE EVENT DATE: 2016
